FAERS Safety Report 25138680 (Version 2)
Quarter: 2025Q4

REPORT INFORMATION
  Report Type: Spontaneous
  Country: JP (occurrence: JP)
  Receive Date: 20250330
  Receipt Date: 20251202
  Transmission Date: 20260118
  Serious: Yes (Hospitalization, Other)
  Sender: BRISTOL-MYERS SQUIBB COMPANY
  Company Number: JP-BRISTOL-MYERS SQUIBB COMPANY-2025-043238

PATIENT

DRUGS (1)
  1. REVLIMID [Suspect]
     Active Substance: LENALIDOMIDE
     Indication: Product used for unknown indication
     Dosage: DOSE : 5 CAPSULES;     FREQ : DAILY
     Route: 048

REACTIONS (4)
  - Altered state of consciousness [Unknown]
  - Product storage error [Unknown]
  - Pneumonia influenzal [Unknown]
  - Physical deconditioning [Unknown]
